FAERS Safety Report 5414193-0 (Version None)
Quarter: 2007Q3

REPORT INFORMATION
  Report Type: 
  Country: None (occurrence: None)
  Receive Date: 20070814
  Receipt Date: 20070810
  Transmission Date: 20080115
  Serious: Yes (Hospitalization)
  Sender: FDA-Public Use
  Company Number: SE-BAYER-200714040GDS

PATIENT
  Age: 68 Year
  Sex: Male

DRUGS (3)
  1. NEXAVAR [Suspect]
     Indication: RENAL CANCER METASTATIC
     Dosage: UNIT DOSE: 200 MG
     Route: 048
     Dates: start: 20070305, end: 20070509
  2. BETAPRED [Suspect]
     Indication: DRUG USE FOR UNKNOWN INDICATION
     Dosage: UNIT DOSE: 0.5 MG
     Route: 048
     Dates: start: 20070509, end: 20070515
  3. PRIMPERAN INJ [Concomitant]
     Indication: DRUG USE FOR UNKNOWN INDICATION
     Route: 065

REACTIONS (3)
  - CEREBRAL INFARCTION [None]
  - DERMATITIS BULLOUS [None]
  - HYPERGLYCAEMIA [None]
